FAERS Safety Report 19683096 (Version 1)
Quarter: 2021Q3

REPORT INFORMATION
  Report Type: Spontaneous
  Country: US (occurrence: US)
  Receive Date: 20210810
  Receipt Date: 20210810
  Transmission Date: 20211014
  Serious: Yes (Death, Hospitalization, Other)
  Sender: FDA-Public Use
  Company Number: US-PAIPHARMA-2021-US-016126

PATIENT
  Age: 2 Year
  Sex: Female

DRUGS (5)
  1. L?CARNITINE [Concomitant]
     Active Substance: LEVOCARNITINE
  2. LACTULOSE (NON?SPECIFIC) [Suspect]
     Active Substance: LACTULOSE
     Indication: PRODUCT USED FOR UNKNOWN INDICATION
     Route: 048
  3. PHENYTOIN. [Concomitant]
     Active Substance: PHENYTOIN
  4. LEVETIRACETAM. [Concomitant]
     Active Substance: LEVETIRACETAM
  5. TOPIRAMATE. [Concomitant]
     Active Substance: TOPIRAMATE

REACTIONS (2)
  - Overdose [Fatal]
  - Electrolyte imbalance [Fatal]

NARRATIVE: CASE EVENT DATE: 2019
